FAERS Safety Report 8495470-6 (Version None)
Quarter: 2012Q3

REPORT INFORMATION
  Report Type: 
  Country: None (occurrence: None)
  Receive Date: 20120709
  Receipt Date: 20120629
  Transmission Date: 20120928
  Serious: Yes (Other)
  Sender: FDA-Public Use
  Company Number: US-ASTRAZENECA-2012SE27279

PATIENT
  Age: 59 Year
  Sex: Female
  Weight: 62.1 kg

DRUGS (7)
  1. SYNTHROID [Concomitant]
     Dosage: 50 MCG DAILY
     Route: 048
  2. CAPRELSA [Suspect]
     Route: 048
     Dates: start: 20120111, end: 20120607
  3. LOMOTIL [Concomitant]
     Dosage: 2.5-0.025 AS REQUIRED
     Route: 048
  4. PROTONIX [Concomitant]
     Route: 048
  5. CAPRELSA [Suspect]
     Indication: THYROID CANCER STAGE IV
     Route: 048
     Dates: start: 20120112, end: 20120308
  6. VITAMIN B-12 CR [Concomitant]
     Dosage: 1000 MCG DAILY
     Route: 048
  7. CAPRELSA [Suspect]
     Route: 048
     Dates: start: 20120404

REACTIONS (9)
  - NIGHT SWEATS [None]
  - RASH [None]
  - DIARRHOEA [None]
  - PALPITATIONS [None]
  - DYSPHONIA [None]
  - HYPERTENSION [None]
  - ELECTROCARDIOGRAM QT PROLONGED [None]
  - FLUSHING [None]
  - HEADACHE [None]
